FAERS Safety Report 17253464 (Version 1)
Quarter: 2020Q1

REPORT INFORMATION
  Report Type: Spontaneous
  Country: SE (occurrence: SE)
  Receive Date: 20200109
  Receipt Date: 20200109
  Transmission Date: 20200409
  Serious: Yes (Hospitalization)
  Sender: FDA-Public Use
  Company Number: SE-MYLANLABS-2020M1002032

PATIENT
  Age: 14 Year
  Sex: Male
  Weight: 50 kg

DRUGS (1)
  1. LERGIGAN FORTE 50 MG FILMDRAGERADE TABLETTER [Suspect]
     Active Substance: PROMETHAZINE HYDROCHLORIDE
     Indication: PRODUCT USED FOR UNKNOWN INDICATION
     Dosage: OKLAR M?NGD, MAX 9 ST
     Route: 048
     Dates: start: 20180817, end: 20180817

REACTIONS (12)
  - Gait disturbance [Unknown]
  - Akathisia [Unknown]
  - Somnolence [Unknown]
  - Dysarthria [Unknown]
  - Sluggishness [Unknown]
  - Fatigue [Unknown]
  - Intentional overdose [Unknown]
  - Confusional state [Unknown]
  - Intentional self-injury [Unknown]
  - Psychomotor hyperactivity [Unknown]
  - Aphasia [Unknown]
  - Balance disorder [Unknown]

NARRATIVE: CASE EVENT DATE: 20180817
